FAERS Safety Report 5141533-2 (Version None)
Quarter: 2006Q4

REPORT INFORMATION
  Report Type: 
  Country: None (occurrence: None)
  Receive Date: 20061026
  Receipt Date: 20061012
  Transmission Date: 20070319
  Serious: Yes (Other)
  Sender: FDA-Public Use
  Company Number: CIP06002418

PATIENT
  Sex: Female

DRUGS (6)
  1. ACTONEL [Suspect]
     Dosage: 35 MG ONCE WEEKLY, ORAL
     Route: 048
     Dates: start: 20040101
  2. EVISTA [Concomitant]
  3. ASACOL [Concomitant]
  4. MERCAPTOPURINE [Concomitant]
  5. PREDNISONE TAB [Concomitant]
  6. VITAMIN D [Concomitant]

REACTIONS (4)
  - BLOOD PARATHYROID HORMONE INCREASED [None]
  - BREAST CANCER [None]
  - PARATHYROID GLAND ENLARGEMENT [None]
  - UNEVALUABLE EVENT [None]
